FAERS Safety Report 10578015 (Version 1)
Quarter: 2014Q4

REPORT INFORMATION
  Report Type: Spontaneous
  Country: US (occurrence: US)
  Receive Date: 20141112
  Receipt Date: 20141112
  Transmission Date: 20150529
  Serious: Yes (Other)
  Sender: FDA-Public Use
  Company Number: US-CIPLA LTD.-2014US01677

PATIENT
  Age: 8 Year
  Sex: Male

DRUGS (1)
  1. IRINOTECAN [Suspect]
     Active Substance: IRINOTECAN
     Indication: NEPHROBLASTOMA
     Dosage: 30 MG/M2, PER DAY

REACTIONS (3)
  - Diarrhoea [Unknown]
  - Disease recurrence [Unknown]
  - Hypertension [Unknown]
